FAERS Safety Report 11778536 (Version 1)
Quarter: 2015Q4

REPORT INFORMATION
  Report Type: Spontaneous
  Country: US (occurrence: US)
  Receive Date: 20151125
  Receipt Date: 20151125
  Transmission Date: 20160304
  Serious: No
  Sender: FDA-Public Use
  Company Number: US-BAYER-2015-476282

PATIENT
  Age: 26 Year
  Sex: Female

DRUGS (1)
  1. GADAVIST [Suspect]
     Active Substance: GADOBUTROL
     Dosage: 8.5 ML, ONCE
     Route: 042
     Dates: start: 20151124, end: 20151124

REACTIONS (2)
  - Erythema [None]
  - Urticaria [None]
